FAERS Safety Report 16333204 (Version 1)
Quarter: 2019Q2

REPORT INFORMATION
  Report Type: Spontaneous
  Country: US (occurrence: US)
  Receive Date: 20190520
  Receipt Date: 20190520
  Transmission Date: 20190711
  Serious: No
  Sender: FDA-Public Use
  Company Number: US-GE HEALTHCARE LIFE SCIENCES-2019CSU001554

PATIENT
  Age: 51 Year
  Sex: Male
  Weight: 75.9 kg

DRUGS (13)
  1. MYOVIEW [Suspect]
     Active Substance: TECHNETIUM TC-99M TETROFOSMIN
     Indication: MUSCULOSKELETAL PAIN
  2. MYOVIEW [Suspect]
     Active Substance: TECHNETIUM TC-99M TETROFOSMIN
     Indication: DIZZINESS
  3. MYOVIEW [Suspect]
     Active Substance: TECHNETIUM TC-99M TETROFOSMIN
     Indication: DYSPNOEA
  4. MYOVIEW [Suspect]
     Active Substance: TECHNETIUM TC-99M TETROFOSMIN
     Indication: SCAN MYOCARDIAL PERFUSION
  5. ATORVASTATIN [Concomitant]
     Active Substance: ATORVASTATIN
  6. LUNESTA [Concomitant]
     Active Substance: ESZOPICLONE
  7. MYOVIEW [Suspect]
     Active Substance: TECHNETIUM TC-99M TETROFOSMIN
     Indication: CARDIAC STRESS TEST
     Dosage: 1576 MBQ (42.6 MCI), ONCE
     Route: 042
     Dates: start: 20190307, end: 20190307
  8. MYOVIEW [Suspect]
     Active Substance: TECHNETIUM TC-99M TETROFOSMIN
     Indication: PAIN IN JAW
  9. TECHNETIUM TC 99M [Concomitant]
     Active Substance: TECHNETIUM TC-99M
     Dosage: UNK
     Route: 042
     Dates: start: 20190307, end: 20190307
  10. ZOLOFT [Concomitant]
     Active Substance: SERTRALINE HYDROCHLORIDE
  11. ZANTAC [Concomitant]
     Active Substance: RANITIDINE HYDROCHLORIDE
  12. ALLOPURINOL. [Concomitant]
     Active Substance: ALLOPURINOL
  13. MOBIC [Concomitant]
     Active Substance: MELOXICAM

REACTIONS (2)
  - Drug ineffective [Recovered/Resolved]
  - No adverse event [Recovered/Resolved]

NARRATIVE: CASE EVENT DATE: 20190307
